FAERS Safety Report 15214754 (Version 7)
Quarter: 2024Q2

REPORT INFORMATION
  Report Type: Report from Study
  Country: JP (occurrence: JP)
  Receive Date: 20180730
  Receipt Date: 20240626
  Transmission Date: 20240716
  Serious: Yes (Life-Threatening, Hospitalization, Disabling, Other)
  Sender: FDA-Public Use
  Company Number: JP-GLAXOSMITHKLINE-JP2018JPN131320

PATIENT

DRUGS (12)
  1. BELIMUMAB [Suspect]
     Active Substance: BELIMUMAB
     Indication: Systemic lupus erythematosus
     Dosage: 200 MG, WE
     Route: 058
     Dates: start: 20180622, end: 20180719
  2. BELIMUMAB [Suspect]
     Active Substance: BELIMUMAB
     Indication: Antiphospholipid syndrome
  3. PREDONINE [Concomitant]
     Active Substance: PREDNISOLONE
     Indication: Systemic lupus erythematosus
     Dosage: 9 MG, QD
     Dates: start: 20130906
  4. PROGRAF [Concomitant]
     Active Substance: TACROLIMUS
     Indication: Systemic lupus erythematosus
     Dosage: 3 MG, 1D
  5. CELLCEPT [Concomitant]
     Active Substance: MYCOPHENOLATE MOFETIL
     Indication: Systemic lupus erythematosus
     Dosage: 1 G, 1D
  6. PLAQUENIL [Concomitant]
     Active Substance: HYDROXYCHLOROQUINE SULFATE
     Indication: Systemic lupus erythematosus
     Dosage: 200 MG, 1D
  7. WARFARIN [Concomitant]
     Active Substance: WARFARIN
     Indication: Antiphospholipid syndrome
     Dosage: 3.5 MG, 1D
  8. WARFARIN [Concomitant]
     Active Substance: WARFARIN
     Indication: Acute myocardial infarction
     Dosage: UNK UNK, 1D
     Dates: start: 20180724, end: 20180818
  9. LANSOPRAZOLE [Concomitant]
     Active Substance: LANSOPRAZOLE
     Dosage: UNK
  10. URSO [Concomitant]
     Active Substance: URSODIOL
     Dosage: UNK
  11. CANDESARTAN CILEXETIL [Concomitant]
     Active Substance: CANDESARTAN CILEXETIL
     Dosage: UNK
  12. MINODRONIC ACID [Concomitant]
     Active Substance: MINODRONIC ACID
     Dosage: UNK

REACTIONS (1)
  - Acute myocardial infarction [Recovered/Resolved]

NARRATIVE: CASE EVENT DATE: 20180724
